FAERS Safety Report 7638128-5 (Version None)
Quarter: 2011Q3

REPORT INFORMATION
  Report Type: 
  Country: None (occurrence: None)
  Receive Date: 20110727
  Receipt Date: 20110719
  Transmission Date: 20111222
  Serious: Yes (Hospitalization)
  Sender: FDA-Public Use
  Company Number: US-US-EMD SERONO, INC.-7065021

PATIENT
  Sex: Female
  Weight: 67 kg

DRUGS (2)
  1. UNSPECIFIED BIRTH CONTROL PILL MEDICATION [Concomitant]
     Indication: CONTRACEPTION
  2. REBIF [Suspect]
     Indication: MULTIPLE SCLEROSIS
     Route: 058
     Dates: start: 20110118

REACTIONS (5)
  - TREMOR [None]
  - EYE DISORDER [None]
  - DYSPHONIA [None]
  - EYE MOVEMENT DISORDER [None]
  - URINARY TRACT INFECTION [None]
